FAERS Safety Report 5084543-6 (Version None)
Quarter: 2006Q3

REPORT INFORMATION
  Report Type: 
  Country: None (occurrence: None)
  Receive Date: 20060821
  Receipt Date: 20060815
  Transmission Date: 20061208
  Serious: Yes (Hospitalization)
  Sender: FDA-Public Use
  Company Number: US-MERCK-0608USA03868

PATIENT
  Age: 2 Year
  Sex: Male

DRUGS (6)
  1. SINGULAIR [Suspect]
     Indication: ASTHMA
     Route: 048
     Dates: start: 20020101
  2. INHALED CORTICOSTEROID (UNSPECIFIED) [Concomitant]
     Route: 055
  3. PULMICORT [Concomitant]
     Route: 065
  4. ALBUTEROL [Concomitant]
     Route: 065
  5. PREDNISONE [Concomitant]
     Route: 048
  6. XOPENEX [Concomitant]
     Route: 065

REACTIONS (3)
  - ASTHMA [None]
  - OVERDOSE [None]
  - RHINORRHOEA [None]
